FAERS Safety Report 5337849-7 (Version None)
Quarter: 2007Q2

REPORT INFORMATION
  Report Type: 
  Country: None (occurrence: None)
  Receive Date: 20070308
  Receipt Date: 20061220
  Transmission Date: 20071010
  Serious: No
  Sender: FDA-Public Use
  Company Number: IND-AE-06-SAN-053

PATIENT
  Age: 54 Year
  Sex: Female
  Weight: 79.8331 kg

DRUGS (6)
  1. SANCTURA [Suspect]
     Indication: CYSTITIS INTERSTITIAL
     Dosage: 20MG - QD - ORAL
     Route: 048
     Dates: start: 20061211
  2. MORPHINE SULFATE IR [Suspect]
     Indication: COMPLEX REGIONAL PAIN SYNDROME
     Dosage: 15MG - QD - ORAL
     Route: 048
     Dates: start: 19980101
  3. FENTANYL TRANSDERMAL SYSTEM [Concomitant]
  4. SYNTHROID [Concomitant]
  5. ULTRAM [Concomitant]
  6. PRILOSEC [Concomitant]

REACTIONS (15)
  - ABDOMINAL PAIN [None]
  - CHEST PAIN [None]
  - CONSTIPATION [None]
  - DRUG INTERACTION [None]
  - DRY EYE [None]
  - DRY MOUTH [None]
  - DRY SKIN [None]
  - FAECALOMA [None]
  - HEADACHE [None]
  - LACRIMATION DECREASED [None]
  - LETHARGY [None]
  - MUCOSAL DRYNESS [None]
  - MUSCULOSKELETAL STIFFNESS [None]
  - RECTAL FISSURE [None]
  - TEMPERATURE INTOLERANCE [None]
